FAERS Safety Report 6618622-6 (Version None)
Quarter: 2010Q1

REPORT INFORMATION
  Report Type: 
  Country: None (occurrence: None)
  Receive Date: 20100308
  Receipt Date: 20100223
  Transmission Date: 20100710
  Serious: Yes (Life-Threatening, Hospitalization)
  Sender: FDA-Public Use
  Company Number: JP-AMGEN-US375924

PATIENT
  Sex: Female
  Weight: 57 kg

DRUGS (18)
  1. ENBREL [Suspect]
     Indication: RHEUMATOID ARTHRITIS
     Dosage: LYOPHILIZED, 25MGX2/WK
     Route: 058
     Dates: start: 20060608, end: 20080624
  2. ENBREL [Suspect]
     Route: 058
     Dates: start: 20080708, end: 20090513
  3. PREDONINE [Suspect]
     Indication: RHEUMATOID ARTHRITIS
     Route: 048
     Dates: end: 20060630
  4. PREDONINE [Suspect]
     Route: 048
     Dates: start: 20060701
  5. TAGAMET [Concomitant]
     Indication: PROPHYLAXIS AGAINST GASTROINTESTINAL ULCER
     Route: 048
  6. EVISTA [Concomitant]
     Indication: OSTEOPOROSIS
     Route: 048
     Dates: start: 20060905
  7. MAG-LAX [Concomitant]
     Route: 048
  8. LIPOVAS ^BANYU^ [Concomitant]
     Indication: HYPERLIPIDAEMIA
     Route: 048
     Dates: start: 20060616, end: 20080303
  9. GEFANIL [Concomitant]
     Indication: PROPHYLAXIS AGAINST GASTROINTESTINAL ULCER
     Route: 048
  10. DEPAS [Concomitant]
     Route: 048
  11. MOHRUS [Concomitant]
     Indication: RHEUMATOID ARTHRITIS
     Route: 065
     Dates: start: 20060106
  12. CALONAL [Concomitant]
     Dosage: UNKNOWN
     Route: 048
  13. CEFDITOREN PIVOXIL [Concomitant]
     Route: 048
  14. VOLTAREN [Concomitant]
     Indication: RHEUMATOID ARTHRITIS
     Route: 054
     Dates: end: 20060711
  15. VOLTAREN [Concomitant]
     Route: 054
     Dates: start: 20060712, end: 20060807
  16. ADALAT [Concomitant]
     Indication: HYPERTENSION
     Route: 048
     Dates: start: 20060616, end: 20070422
  17. FERROMIA [Concomitant]
     Indication: ANAEMIA
     Route: 048
     Dates: start: 20060616, end: 20061113
  18. CLOSTRIDIUM BUTYRICUM [Concomitant]
     Route: 048

REACTIONS (4)
  - COLONIC STENOSIS [None]
  - DIVERTICULAR FISTULA [None]
  - DIVERTICULAR PERFORATION [None]
  - DIVERTICULITIS [None]
